FAERS Safety Report 17694915 (Version 1)
Quarter: 2020Q2

REPORT INFORMATION
  Report Type: Spontaneous
  Country: US (occurrence: US)
  Receive Date: 20200422
  Receipt Date: 20200422
  Transmission Date: 20200714
  Serious: No
  Sender: FDA-Public Use
  Company Number: US-TEVA-2020-US-1226376

PATIENT
  Age: 69 Year
  Sex: Female

DRUGS (6)
  1. COPAXONE [Suspect]
     Active Substance: GLATIRAMER ACETATE
     Indication: MULTIPLE SCLEROSIS
     Route: 058
     Dates: start: 20200226
  2. ROSUVASTATIN. [Concomitant]
     Active Substance: ROSUVASTATIN
  3. ISOSORB MONO, [Concomitant]
  4. RDVIYSLOPTSM [Concomitant]
  5. TRIAMT/HCTZ, [Concomitant]
  6. LOSARTAN, [Concomitant]

REACTIONS (2)
  - Myalgia [Not Recovered/Not Resolved]
  - Muscle spasms [Not Recovered/Not Resolved]

NARRATIVE: CASE EVENT DATE: 20200414
